FAERS Safety Report 21400013 (Version 1)
Quarter: 2022Q4

REPORT INFORMATION
  Report Type: Spontaneous
  Country: ES (occurrence: ES)
  Receive Date: 20221002
  Receipt Date: 20221002
  Transmission Date: 20230113
  Serious: Yes (Life-Threatening)
  Sender: FDA-Public Use
  Company Number: None

PATIENT
  Age: 61 Year
  Sex: Male

DRUGS (3)
  1. CLOPIDOGREL [Interacting]
     Active Substance: CLOPIDOGREL BISULFATE
     Indication: Product used for unknown indication
     Dosage: CLOPIDOGREL (7300A)
     Route: 065
     Dates: start: 20201202, end: 20201205
  2. APIXABAN [Interacting]
     Active Substance: APIXABAN
     Indication: Product used for unknown indication
     Dosage: APIXABAN (8472A)
     Route: 065
     Dates: start: 20201001, end: 20201205
  3. ENOXAPARIN SODIUM [Interacting]
     Active Substance: ENOXAPARIN SODIUM
     Indication: Product used for unknown indication
     Route: 065
     Dates: start: 20201202, end: 20201205

REACTIONS (5)
  - Product prescribing error [Unknown]
  - Anaemia [Unknown]
  - Shock haemorrhagic [Unknown]
  - Abdominal wall haematoma [Unknown]
  - Drug interaction [Unknown]

NARRATIVE: CASE EVENT DATE: 20201203
